FAERS Safety Report 17976868 (Version 1)
Quarter: 2020Q3

REPORT INFORMATION
  Report Type: Spontaneous
  Country: US (occurrence: US)
  Receive Date: 20200702
  Receipt Date: 20200702
  Transmission Date: 20201103
  Serious: Yes (Disabling, Other)
  Sender: FDA-Public Use
  Company Number: US-NAPPMUNDI-USA-2020-0156961

PATIENT
  Sex: Female

DRUGS (1)
  1. OXYCONTIN [Suspect]
     Active Substance: OXYCODONE HYDROCHLORIDE
     Indication: PAIN
     Dosage: UNKNOWN
     Route: 048

REACTIONS (7)
  - Road traffic accident [Unknown]
  - Drug dependence [Unknown]
  - Drug abuse [Unknown]
  - Disability [Unknown]
  - Mental impairment [Unknown]
  - Impaired driving ability [Unknown]
  - Loss of personal independence in daily activities [Unknown]
